FAERS Safety Report 11656213 (Version 1)
Quarter: 2015Q4

REPORT INFORMATION
  Report Type: Spontaneous
  Country: US (occurrence: US)
  Receive Date: 20151023
  Receipt Date: 20151023
  Transmission Date: 20160304
  Serious: Yes (Other)
  Sender: FDA-Public Use
  Company Number: US-TEVA-603496USA

PATIENT
  Age: 7 Year

DRUGS (1)
  1. SILDENAFIL. [Suspect]
     Active Substance: SILDENAFIL
     Indication: VASCULAR MALFORMATION
     Dosage: 1/2 TAB
     Route: 065

REACTIONS (2)
  - Headache [Unknown]
  - Haemorrhage [Unknown]
